FAERS Safety Report 4596396-0 (Version None)
Quarter: 2005Q1

REPORT INFORMATION
  Report Type: 
  Country: None (occurrence: None)
  Receive Date: 20050228
  Receipt Date: 20050215
  Transmission Date: 20050727
  Serious: Yes (Congenital Anomaly)
  Sender: FDA-Public Use
  Company Number: 2005033219

PATIENT
  Sex: Female

DRUGS (2)
  1. SULFASALAZINE [Suspect]
     Indication: RHEUMATOID ARTHRITIS
     Dosage: 2 GRAM (1 GRAM, 2 IN 1 D); ORAL
     Route: 048
     Dates: start: 20040303
  2. ETODOLAC [Suspect]
     Indication: RHEUMATOID ARTHRITIS
     Dosage: 600 MG (600 MG, 1 IN 1 D); ORAL
     Route: 048
     Dates: start: 20040715

REACTIONS (3)
  - ABORTION INDUCED [None]
  - DRUG EXPOSURE DURING PREGNANCY [None]
  - TRISOMY 13 [None]
